FAERS Safety Report 9820365 (Version 2)
Quarter: 2014Q1

REPORT INFORMATION
  Report Type: Spontaneous
  Country: US (occurrence: None)
  Receive Date: 20140114
  Receipt Date: 20140128
  Transmission Date: 20141002
  Serious: Yes (Other)
  Sender: FDA-Public Use
  Company Number: ADR-2014-00054

PATIENT
  Age: 24 Year
  Sex: Male

DRUGS (16)
  1. LIORESAL [Suspect]
     Indication: MUSCLE SPASTICITY
  2. BACLOFEN [Suspect]
     Route: 048
  3. COLACE [Suspect]
  4. PULMICORT [Suspect]
  5. MIRALAX [Suspect]
  6. HEPARIN [Suspect]
  7. KEPPRA [Suspect]
  8. CARNITINE [Suspect]
  9. MULTIPLE VITAMIN [Suspect]
  10. FOLIC ACID [Suspect]
  11. CALCIUM [Suspect]
  12. FLONASE [Suspect]
  13. BACTROBAN [Suspect]
  14. MIACALCIN [Suspect]
  15. ALBUTEROL [Suspect]
  16. URECHOLINE [Suspect]

REACTIONS (5)
  - Abdominal distension [None]
  - Feeding tube complication [None]
  - Implant site necrosis [None]
  - Device related infection [None]
  - Wound infection staphylococcal [None]
